FAERS Safety Report 21768432 (Version 1)
Quarter: 2022Q4

REPORT INFORMATION
  Report Type: Spontaneous
  Country: US (occurrence: None)
  Receive Date: 20221221
  Receipt Date: 20221221
  Transmission Date: 20230113
  Serious: Yes (Death, Hospitalization)
  Sender: FDA-Public Use
  Company Number: None

PATIENT
  Age: 68 Year
  Sex: Female

DRUGS (11)
  1. AMBRISENTAN [Suspect]
     Active Substance: AMBRISENTAN
     Indication: Pulmonary hypertension
     Dosage: 10MG QD ORAL?
     Route: 048
     Dates: start: 20170526, end: 20221208
  2. SILDENAFIL [Concomitant]
     Active Substance: SILDENAFIL
  3. ALLOPURINOL [Concomitant]
     Active Substance: ALLOPURINOL
  4. TORSEMIDE [Concomitant]
     Active Substance: TORSEMIDE
  5. LEVOTHYROXINE [Concomitant]
     Active Substance: LEVOTHYROXINE
  6. PREDNISONE [Concomitant]
     Active Substance: PREDNISONE
  7. PHENOBARBITAL [Concomitant]
     Active Substance: PHENOBARBITAL
  8. HYDROMORPHONE [Concomitant]
     Active Substance: HYDROMORPHONE
  9. LORAZEPAM [Suspect]
     Active Substance: LORAZEPAM
  10. HALOPERIDOL [Concomitant]
     Active Substance: HALOPERIDOL
  11. BISACODYL [Concomitant]
     Active Substance: BISACODYL

REACTIONS (7)
  - COVID-19 [None]
  - Hypoxia [None]
  - Hypervolaemia [None]
  - Dialysis [None]
  - Arteriovenous fistula site complication [None]
  - Loss of personal independence in daily activities [None]
  - Asthenia [None]

NARRATIVE: CASE EVENT DATE: 20221130
